FAERS Safety Report 9784998 (Version 2)
Quarter: 2013Q4

REPORT INFORMATION
  Report Type: Spontaneous
  Country: US (occurrence: US)
  Receive Date: 20131227
  Receipt Date: 20131227
  Transmission Date: 20140711
  Serious: Yes (Other)
  Sender: FDA-Public Use
  Company Number: US-BEH-2013037587

PATIENT
  Sex: Male
  Weight: 69 kg

DRUGS (22)
  1. HIZENTRA [Suspect]
     Route: 058
  2. HIZENTRA [Suspect]
     Route: 058
  3. HIZENTRA [Suspect]
     Dosage: 1-4 SITES OVER 1-2 HOURS
     Route: 058
  4. HIZENTRA [Suspect]
     Indication: IMMUNODEFICIENCY COMMON VARIABLE
     Dosage: 1-4 SITES OVER 1-2 HOURS
     Route: 058
  5. HUMULIN [Concomitant]
  6. LASIX [Concomitant]
  7. LIPITOR [Concomitant]
  8. METOPROLOL TARTRATE [Concomitant]
  9. TERAZOSIN [Concomitant]
  10. GABAPENTIN [Concomitant]
  11. CIPROFLOXACIN [Concomitant]
  12. GLIPIZIDE [Concomitant]
  13. FAMOTIDINE [Concomitant]
  14. ADVAIR [Concomitant]
  15. FERROUS SULFATE [Concomitant]
  16. ALPRAZOLAM [Concomitant]
  17. COMBIVENT [Concomitant]
  18. STOOL SOFTENER [Concomitant]
  19. METFORMIN [Concomitant]
  20. ACETAMINOPHEN [Concomitant]
  21. DIPHENHYDRAMINE [Concomitant]
  22. EPI-PEN [Concomitant]
     Indication: PREMEDICATION

REACTIONS (4)
  - Pneumonia [Unknown]
  - Headache [Unknown]
  - Weight decreased [Unknown]
  - Asthenia [Unknown]
